FAERS Safety Report 4798405-2 (Version None)
Quarter: 2005Q4

REPORT INFORMATION
  Report Type: 
  Country: None (occurrence: None)
  Receive Date: 20051011
  Receipt Date: 20050927
  Transmission Date: 20060501
  Serious: Yes (Other)
  Sender: FDA-Public Use
  Company Number: 12515

PATIENT
  Sex: Female

DRUGS (2)
  1. PACLITAXEL [Suspect]
     Indication: BREAST CANCER
     Dosage: 80 MG/M2 WEEKLY
  2. TARIQUIDAR [Suspect]
     Indication: BREAST CANCER
     Dosage: 150 MG PER_CYCLE IV
     Route: 042

REACTIONS (3)
  - BREAST CANCER FEMALE [None]
  - DRUG INEFFECTIVE [None]
  - MALIGNANT NEOPLASM PROGRESSION [None]
